FAERS Safety Report 4339456-1 (Version None)
Quarter: 2004Q2

REPORT INFORMATION
  Report Type: 
  Country: None (occurrence: None)
  Receive Date: 20040415
  Receipt Date: 20030908
  Transmission Date: 20050107
  Serious: Yes (Other)
  Sender: FDA-Public Use
  Company Number: PHHO2003CA11396

PATIENT
  Age: 35 Year
  Sex: Female
  Weight: 63 kg

DRUGS (2)
  1. MODULON [Concomitant]
  2. ZELNORM [Suspect]
     Indication: IRRITABLE BOWEL SYNDROME
     Dosage: 6 MG, BID
     Route: 048
     Dates: start: 20030617

REACTIONS (4)
  - ABDOMINAL DISTENSION [None]
  - ACTIVITIES OF DAILY LIVING IMPAIRED [None]
  - DISCOMFORT [None]
  - PAIN [None]
